FAERS Safety Report 4321841-5 (Version None)
Quarter: 2004Q1

REPORT INFORMATION
  Report Type: 
  Country: None (occurrence: None)
  Receive Date: 20040323
  Receipt Date: 20030408
  Transmission Date: 20041129
  Serious: Yes (Death, Hospitalization)
  Sender: FDA-Public Use
  Company Number: 200311245EU

PATIENT
  Age: 63 Year
  Sex: Male

DRUGS (9)
  1. ARAVA [Suspect]
     Indication: RHEUMATOID ARTHRITIS
     Route: 048
     Dates: start: 20000406, end: 20030107
  2. ANAKINRA [Suspect]
     Dates: start: 20020701, end: 20030116
  3. CORTISONE [Concomitant]
     Indication: RHEUMATOID ARTHRITIS
     Route: 048
     Dates: start: 20030114, end: 20030101
  4. PENICILLAMIN [Concomitant]
     Route: 048
     Dates: start: 19981102, end: 20000213
  5. ETANERCEPT [Concomitant]
     Route: 042
     Dates: start: 19991109, end: 20020601
  6. INFLIXIMAB [Concomitant]
     Route: 042
     Dates: end: 20000213
  7. METHOTREXATE [Concomitant]
     Dates: start: 19940919
  8. AURANOFIN [Concomitant]
     Dates: start: 19921008, end: 19930208
  9. RESOCHIN [Concomitant]
     Dates: start: 19940919, end: 19981102

REACTIONS (8)
  - ATHEROSCLEROSIS [None]
  - DRUG INEFFECTIVE [None]
  - HYPERSENSITIVITY [None]
  - MULTI-ORGAN FAILURE [None]
  - MYOCARDIAL INFARCTION [None]
  - PLEURISY [None]
  - PNEUMONIA [None]
  - SEPSIS [None]
